FAERS Safety Report 5116183-4 (Version None)
Quarter: 2006Q3

REPORT INFORMATION
  Report Type: 
  Country: None (occurrence: None)
  Receive Date: 20060927
  Receipt Date: 20060725
  Transmission Date: 20061208
  Serious: No
  Sender: FDA-Public Use
  Company Number: US-BRISTOL-MYERS SQUIBB COMPANY-13453659

PATIENT
  Age: 70 Year
  Sex: Female
  Weight: 80 kg

DRUGS (5)
  1. DEFINITY [Suspect]
     Indication: STRESS ECHOCARDIOGRAM
     Route: 042
     Dates: start: 20060725
  2. TOPROL-XL [Concomitant]
  3. HYZAAR [Concomitant]
  4. ADVAIR DISKUS 100/50 [Concomitant]
  5. ATROVENT [Concomitant]

REACTIONS (1)
  - BACK PAIN [None]
